FAERS Safety Report 5073141-6 (Version None)
Quarter: 2006Q3

REPORT INFORMATION
  Report Type: 
  Country: None (occurrence: None)
  Receive Date: 20060711
  Receipt Date: 20060414
  Transmission Date: 20061208
  Serious: No
  Sender: FDA-Public Use
  Company Number: 2006S1000080

PATIENT
  Age: 43 Year
  Sex: Female

DRUGS (5)
  1. CUBICIN [Suspect]
     Indication: BREAST INFECTION
     Dosage: IV
     Route: 042
     Dates: start: 20050902, end: 20060316
  2. CUBICIN [Suspect]
     Indication: DEVICE RELATED INFECTION
     Dosage: IV
     Route: 042
     Dates: start: 20050902, end: 20060316
  3. CUBICIN [Suspect]
     Indication: STREPTOCOCCAL INFECTION
     Dosage: IV
     Route: 042
     Dates: start: 20050902, end: 20060316
  4. PERCOCET [Concomitant]
  5. VIVELLE [Concomitant]

REACTIONS (15)
  - ABDOMINAL DISTENSION [None]
  - CHEST PAIN [None]
  - CHILLS [None]
  - CONSTIPATION [None]
  - DYSPNOEA [None]
  - FATIGUE [None]
  - HEADACHE [None]
  - INJECTION SITE IRRITATION [None]
  - INJECTION SITE SWELLING [None]
  - NAUSEA [None]
  - OEDEMA PERIPHERAL [None]
  - PAIN IN JAW [None]
  - SKIN DISORDER [None]
  - TOOTHACHE [None]
  - WEIGHT INCREASED [None]
